FAERS Safety Report 7801700-3 (Version None)
Quarter: 2011Q4

REPORT INFORMATION
  Report Type: 
  Country: None (occurrence: None)
  Receive Date: 20111007
  Receipt Date: 20110926
  Transmission Date: 20120403
  Serious: Yes (Hospitalization)
  Sender: FDA-Public Use
  Company Number: US-ELI_LILLY_AND_COMPANY-US201108001645

PATIENT
  Sex: Female

DRUGS (7)
  1. FORTEO [Suspect]
     Indication: OSTEOPOROSIS
     Dosage: 20 UG, QD
     Route: 065
     Dates: start: 20110501
  2. FORTEO [Suspect]
     Dosage: 20 UG, QD
     Route: 065
  3. CALCIUM CARBONATE [Concomitant]
  4. NIACIN [Concomitant]
  5. GLUCOSAMINE CHONDROITIN [Concomitant]
  6. VITAMIN D [Concomitant]
  7. ASCORBIC ACID [Concomitant]

REACTIONS (4)
  - INJECTION SITE HAEMORRHAGE [None]
  - GAIT DISTURBANCE [None]
  - ARTHRITIS [None]
  - ARTHRALGIA [None]
